FAERS Safety Report 17809957 (Version 1)
Quarter: 2020Q2

REPORT INFORMATION
  Report Type: Spontaneous
  Country: CN (occurrence: CN)
  Receive Date: 20200520
  Receipt Date: 20200520
  Transmission Date: 20200714
  Serious: Yes (Other)
  Sender: FDA-Public Use
  Company Number: CN-B.BRAUN MEDICAL INC.-2084040

PATIENT
  Age: 12 Month
  Sex: Male
  Weight: 3.49 kg

DRUGS (2)
  1. NUTRILIPID I.V. FAT EMULSION [Suspect]
     Active Substance: SOYBEAN OIL
     Indication: NUTRITIONAL SUPPLEMENTATION
     Route: 041
     Dates: start: 20191230, end: 20200226
  2. COMPOUND AMINO ACID INJECTION FOR CHILDREN 19 AA-1 [Concomitant]
     Route: 041
     Dates: start: 20191230, end: 20200226

REACTIONS (1)
  - Liver disorder [Recovered/Resolved]

NARRATIVE: CASE EVENT DATE: 20200225
